FAERS Safety Report 6842213-5 (Version None)
Quarter: 2010Q3

REPORT INFORMATION
  Report Type: 
  Country: None (occurrence: None)
  Receive Date: 20100714
  Receipt Date: 20071217
  Transmission Date: 20110219
  Serious: No
  Sender: FDA-Public Use
  Company Number: US-PFIZER INC-2007062032

PATIENT
  Sex: Female
  Weight: 51.8 kg

DRUGS (3)
  1. CHANTIX [Suspect]
     Indication: SMOKING CESSATION THERAPY
     Dates: start: 20070704
  2. MOMETASONE FUROATE [Concomitant]
  3. DIOVANE [Concomitant]

REACTIONS (8)
  - ABDOMINAL DISCOMFORT [None]
  - EATING DISORDER [None]
  - ERUCTATION [None]
  - FEELING ABNORMAL [None]
  - HEADACHE [None]
  - MALAISE [None]
  - STOMACH MASS [None]
  - VOMITING [None]
